FAERS Safety Report 7912189-8 (Version None)
Quarter: 2011Q4

REPORT INFORMATION
  Report Type: 
  Country: None (occurrence: None)
  Receive Date: 20111114
  Receipt Date: 20111103
  Transmission Date: 20120403
  Serious: Yes (Hospitalization, Other)
  Sender: FDA-Public Use
  Company Number: US-ACTELION-A-US2011-49684

PATIENT

DRUGS (15)
  1. GABAPENTIN [Concomitant]
  2. ACETAMINOPHEN [Concomitant]
  3. LEVOTHYROXINE SODIUM [Concomitant]
  4. AMIODARONE HCL [Concomitant]
  5. FEXOFENADINE [Concomitant]
  6. SILDENAFIL [Concomitant]
  7. ASPIRIN [Concomitant]
  8. NOVOLOG [Concomitant]
  9. EPOPROSTENOL SODIUM [Suspect]
     Indication: PULMONARY ARTERIAL HYPERTENSION
     Dosage: 30 NG/KG, PER MIN
     Route: 042
     Dates: start: 20100318
  10. ALLOPURINOL [Concomitant]
  11. MULTI-VITAMIN [Concomitant]
  12. HYDROCORTISONE [Concomitant]
  13. MIDODRINE HYDROCHLORIDE [Concomitant]
  14. OXYGEN [Concomitant]
  15. CALCIUM ACETATE [Concomitant]

REACTIONS (8)
  - VISION BLURRED [None]
  - HYPOTENSION [None]
  - DIZZINESS [None]
  - ASTHENIA [None]
  - HYPOVOLAEMIC SHOCK [None]
  - RECTAL HAEMORRHAGE [None]
  - HAEMORRHOIDS [None]
  - ANAEMIA [None]
